FAERS Safety Report 4682739-6 (Version None)
Quarter: 2005Q2

REPORT INFORMATION
  Report Type: 
  Country: None (occurrence: None)
  Receive Date: 20050602
  Receipt Date: 20050418
  Transmission Date: 20051028
  Serious: No
  Sender: FDA-Public Use
  Company Number: USA050495827

PATIENT
  Age: 63 Year
  Sex: Female

DRUGS (8)
  1. CYMBALTA [Suspect]
     Indication: DEPRESSION
     Dosage: 30 MG DAY
     Dates: start: 20050301
  2. LASIX [Concomitant]
  3. BEXTRA [Concomitant]
  4. CALCIUM GLUCONATE [Concomitant]
  5. K-DUR 10 [Concomitant]
  6. FOLIC ACID [Concomitant]
  7. ACETYLSALICYLIC ACID SRT [Concomitant]
  8. MULTIVITAMINS NOS (MULTIVITAMINS NOS) [Concomitant]

REACTIONS (3)
  - DYSGEUSIA [None]
  - FLUID RETENTION [None]
  - INSOMNIA [None]
